FAERS Safety Report 5992016-9 (Version None)
Quarter: 2008Q4

REPORT INFORMATION
  Report Type: 
  Country: None (occurrence: None)
  Receive Date: 20081211
  Receipt Date: 20081205
  Transmission Date: 20090506
  Serious: Yes (Other)
  Sender: FDA-Public Use
  Company Number: BR-ROXANE LABORATORIES, INC.-2008-RO-00367RO

PATIENT
  Age: 62 Year
  Sex: Male

DRUGS (5)
  1. DIAZEPAM [Suspect]
  2. HYDROCHLOROTHIAZIDE [Suspect]
     Indication: HYPERTENSION
  3. HALOPERIDOL [Suspect]
  4. PROMETHAZINE [Suspect]
  5. CAPTOPRIL [Suspect]
     Indication: HYPERTENSION

REACTIONS (2)
  - MEGACOLON [None]
  - VOLVULUS [None]
